FAERS Safety Report 24075240 (Version 5)
Quarter: 2024Q3

REPORT INFORMATION
  Report Type: Spontaneous
  Country: US (occurrence: US)
  Receive Date: 20240710
  Receipt Date: 20240827
  Transmission Date: 20241017
  Serious: No
  Sender: AMGEN
  Company Number: US-AMGEN-USASP2024135940

PATIENT
  Age: 73 Year
  Sex: Female

DRUGS (2)
  1. REPATHA [Suspect]
     Active Substance: EVOLOCUMAB
     Indication: Product used for unknown indication
     Dosage: 140 MILLIGRAM, Q2WK (TWICE A MONTH)
     Route: 065
     Dates: start: 20240601
  2. REPATHA [Suspect]
     Active Substance: EVOLOCUMAB
     Dosage: 140 MILLIGRAM, Q2WK (TWICE A MONTH)
     Route: 065

REACTIONS (6)
  - Injury associated with device [Unknown]
  - Product administration error [Unknown]
  - Inappropriate schedule of product administration [Unknown]
  - Device difficult to use [Unknown]
  - Device use error [Unknown]
  - Injection site pain [Unknown]

NARRATIVE: CASE EVENT DATE: 20240601
